FAERS Safety Report 7959195-5 (Version None)
Quarter: 2011Q4

REPORT INFORMATION
  Report Type: 
  Country: None (occurrence: None)
  Receive Date: 20111206
  Receipt Date: 20111130
  Transmission Date: 20120403
  Serious: Yes (Hospitalization, Other)
  Sender: FDA-Public Use
  Company Number: AU-B.I. PHARMACEUTICALS,INC./RIDGEFIELD-2011-AU-02270AU

PATIENT
  Sex: Female
  Weight: 71 kg

DRUGS (6)
  1. METOPROLOL TARTRATE [Concomitant]
     Dosage: 50 MG
  2. MICARDIS [Concomitant]
     Dosage: 80 MG
  3. PRADAXA [Suspect]
     Indication: CEREBROVASCULAR ACCIDENT PROPHYLAXIS
     Dosage: 110 MG
     Dates: start: 20110722, end: 20111117
  4. PANTOPRAZOLE [Concomitant]
     Dosage: 40 MG
  5. METFORMIN HCL [Concomitant]
     Dosage: 500 MG
  6. PRADAXA [Suspect]
     Indication: ATRIAL FIBRILLATION

REACTIONS (4)
  - MALIGNANT PLEURAL EFFUSION [None]
  - DYSPNOEA [None]
  - HAEMOTHORAX [None]
  - LUNG NEOPLASM MALIGNANT [None]
